FAERS Safety Report 18117165 (Version 1)
Quarter: 2020Q3

REPORT INFORMATION
  Report Type: Spontaneous
  Country: JP (occurrence: JP)
  Receive Date: 20200806
  Receipt Date: 20200806
  Transmission Date: 20201103
  Serious: Yes (Death, Other)
  Sender: FDA-Public Use
  Company Number: JP-AMGEN-JPNSP2020125095

PATIENT
  Age: 57 Year
  Sex: Female
  Weight: 48 kg

DRUGS (3)
  1. FULVESTRANT. [Concomitant]
     Active Substance: FULVESTRANT
     Indication: BREAST CANCER RECURRENT
     Dosage: UNK
  2. RANMARK [Suspect]
     Active Substance: DENOSUMAB
     Indication: HYPERCALCAEMIA OF MALIGNANCY
     Dosage: UNK
     Route: 065
  3. ELCATONIN [Concomitant]
     Active Substance: ELCATONIN
     Indication: HYPERCALCAEMIA OF MALIGNANCY
     Dosage: UNK
     Route: 065

REACTIONS (2)
  - Metastases to central nervous system [Fatal]
  - Off label use [Unknown]
